FAERS Safety Report 11183095 (Version 2)
Quarter: 2015Q2

REPORT INFORMATION
  Report Type: Report from Study
  Country: ES (occurrence: ES)
  Receive Date: 20150611
  Receipt Date: 20150622
  Transmission Date: 20150821
  Serious: Yes (Death, Other)
  Sender: FDA-Public Use
  Company Number: ES-GILEAD-2015-0157888

PATIENT
  Age: 51 Year
  Sex: Male

DRUGS (4)
  1. LEDIPASVIR/SOFOSBUVIR [Suspect]
     Active Substance: LEDIPASVIR\SOFOSBUVIR
     Indication: PRODUCT USED FOR UNKNOWN INDICATION
     Route: 065
  2. RIFAXIMIN [Concomitant]
     Active Substance: RIFAXIMIN
     Dosage: 1200 UNK, UNK
     Route: 048
     Dates: start: 20141101, end: 20150604
  3. TRAZODONE [Concomitant]
     Active Substance: TRAZODONE HYDROCHLORIDE
     Indication: DEPRESSION
     Dosage: 100 UNK, UNK
     Route: 048
     Dates: start: 20150507, end: 20150604
  4. HEPARIN LMW [Concomitant]
     Active Substance: UNSPECIFIED INGREDIENT
     Indication: THROMBOSIS MESENTERIC VESSEL
     Dosage: 1000 IU, UNK
     Route: 058
     Dates: start: 20141005, end: 20150604

REACTIONS (1)
  - Peritonitis bacterial [Fatal]
